FAERS Safety Report 8801776 (Version 3)
Quarter: 2014Q1

REPORT INFORMATION
  Report Type: Spontaneous
  Country: US (occurrence: US)
  Receive Date: 20120921
  Receipt Date: 20140203
  Transmission Date: 20141002
  Serious: Yes (Disabling, Other)
  Sender: FDA-Public Use
  Company Number: US-BAYER-200511009BWH

PATIENT
  Age: 25 Year
  Sex: Male
  Weight: 95 kg

DRUGS (11)
  1. CIPROFLOXACIN (BARR) [Suspect]
     Indication: BACTERIAL PROSTATITIS
     Dosage: 500 MG, BID
     Route: 048
     Dates: start: 200408, end: 20041009
  2. CIPROFLOXACIN (BARR) [Interacting]
     Indication: PROSTATOMEGALY
     Dosage: UNK
     Route: 048
     Dates: start: 20040901
  3. PREDNISONE [Interacting]
     Indication: DENTAL IMPLANTATION
     Dosage: UNK
     Dates: start: 20040901
  4. PREDNISONE [Interacting]
     Indication: DENTAL IMPLANTATION
     Dosage: UNK UNK, BID
     Dates: start: 20040924, end: 20040930
  5. IBUPROFEN [Suspect]
     Indication: PAIN
     Dosage: 800 MG, UNK
     Dates: start: 200409
  6. PENICILLIN VK [Suspect]
     Indication: DEVICE RELATED INFECTION
     Dosage: UNK
     Dates: start: 200409
  7. BUSPAR [Suspect]
     Indication: BRUXISM
     Dosage: UNK
     Dates: start: 20040906
  8. VICODIN [Suspect]
     Indication: PAIN
     Dosage: UNK
     Dates: start: 200409
  9. PROZAC [Suspect]
     Dosage: UNK
     Dates: start: 20040906, end: 20040914
  10. PAXIL [Concomitant]
     Dosage: UNK
     Dates: start: 200410
  11. ZANAFLEX [Concomitant]
     Dosage: UNK
     Dates: start: 200410

REACTIONS (54)
  - Fibromyalgia [Unknown]
  - Cartilage injury [Unknown]
  - Pain [Unknown]
  - Arthralgia [Unknown]
  - Back pain [Unknown]
  - Pain [Unknown]
  - Myalgia [Unknown]
  - General physical health deterioration [Unknown]
  - Asthenia [Unknown]
  - Chronic fatigue syndrome [Unknown]
  - Irritable bowel syndrome [None]
  - Muscle injury [Unknown]
  - Abnormal loss of weight [None]
  - Muscle atrophy [Unknown]
  - Depression [None]
  - Musculoskeletal pain [Unknown]
  - Pain in extremity [Unknown]
  - Insomnia [Unknown]
  - Sleep disorder [None]
  - Dizziness [Unknown]
  - Headache [Unknown]
  - Muscle disorder [None]
  - Myalgia [Unknown]
  - Joint crepitation [Unknown]
  - Joint crepitation [Unknown]
  - Muscle strain [Unknown]
  - Spinal pain [Unknown]
  - Pain [Unknown]
  - Neck pain [Unknown]
  - Loss of libido [None]
  - Muscle rupture [None]
  - Muscle strain [None]
  - Vein discolouration [None]
  - Costochondritis [None]
  - Musculoskeletal chest pain [Unknown]
  - Skeletal injury [Unknown]
  - Intervertebral disc protrusion [None]
  - Suicidal ideation [None]
  - Suicidal ideation [None]
  - Obsessive thoughts [None]
  - Nerve injury [Unknown]
  - Neuralgia [Unknown]
  - Hypoaesthesia [Unknown]
  - Burning sensation [Unknown]
  - Paraesthesia [Unknown]
  - Confusional state [None]
  - Disturbance in attention [None]
  - Nightmare [None]
  - Oral surgery [None]
  - Drug interaction [None]
  - Scar [None]
  - Bedridden [Unknown]
  - Quality of life decreased [None]
  - Anhedonia [None]
